FAERS Safety Report 7511362-0 (Version None)
Quarter: 2011Q2

REPORT INFORMATION
  Report Type: 
  Country: None (occurrence: None)
  Receive Date: 20110531
  Receipt Date: 20110426
  Transmission Date: 20111010
  Serious: Yes (Other)
  Sender: FDA-Public Use
  Company Number: US-BAYER-201041869NA

PATIENT
  Sex: Female
  Weight: 64.853 kg

DRUGS (2)
  1. YAZ [Suspect]
     Dosage: UNK UNK, UNK
     Route: 048
     Dates: start: 20080801, end: 20090201
  2. PRENATAL VITAMINS [Concomitant]
     Route: 048

REACTIONS (4)
  - CHOLECYSTITIS ACUTE [None]
  - ORGAN FAILURE [None]
  - GALLBLADDER NON-FUNCTIONING [None]
  - ABDOMINAL PAIN [None]
